FAERS Safety Report 6289176-1 (Version None)
Quarter: 2009Q3

REPORT INFORMATION
  Report Type: 
  Country: None (occurrence: None)
  Receive Date: 20090728
  Receipt Date: 20090717
  Transmission Date: 20100115
  Serious: Yes (Hospitalization)
  Sender: FDA-Public Use
  Company Number: CIP09001926

PATIENT
  Age: 65 Year
  Sex: Female

DRUGS (6)
  1. ACTONEL [Suspect]
     Dosage: 1 SACHET CYCLIC DALY, ORAL
     Route: 048
     Dates: start: 20080815, end: 20090529
  2. CRESTOR [Concomitant]
  3. LEVOTHYROXINE SODIUM [Concomitant]
  4. COVERSYL PLUS (INDAPAMIDE, PERINDOPRIL ERBUMINE) [Concomitant]
  5. SOMAC (PANTOPRAZOLE SODIIM) [Concomitant]
  6. PANADEINE /00116401/ (CODEINE PHOSPHATE, PARACETAMOL) [Concomitant]

REACTIONS (10)
  - BURNING SENSATION [None]
  - ENDODONTIC PROCEDURE [None]
  - GINGIVAL DISORDER [None]
  - GINGIVAL PAIN [None]
  - NEURALGIA [None]
  - ORAL PAIN [None]
  - PAIN IN JAW [None]
  - SKIN EXFOLIATION [None]
  - TOOTH FRACTURE [None]
  - TOOTHACHE [None]
